FAERS Safety Report 6148973-3 (Version None)
Quarter: 2009Q2

REPORT INFORMATION
  Report Type: 
  Country: None (occurrence: None)
  Receive Date: 20090406
  Receipt Date: 20090324
  Transmission Date: 20091009
  Serious: Yes (Hospitalization)
  Sender: FDA-Public Use
  Company Number: 2008-04298

PATIENT
  Age: 58 Year
  Sex: Male
  Weight: 87.1 kg

DRUGS (7)
  1. VELCADE [Suspect]
     Indication: MULTIPLE MYELOMA
  2. MELPHALAN(MELPHALAN) VIAL [Suspect]
     Indication: MULTIPLE MYELOMA
  3. ACETAMINOPHEN [Concomitant]
  4. TRAMADOL HCL [Concomitant]
  5. VALACYCLOVIR [Concomitant]
  6. NATRIUMPICOSULFAT [Concomitant]
  7. MORPHINE [Concomitant]

REACTIONS (2)
  - ABSCESS LIMB [None]
  - NOCARDIOSIS [None]
